FAERS Safety Report 7598285-6 (Version None)
Quarter: 2011Q3

REPORT INFORMATION
  Report Type: 
  Country: None (occurrence: None)
  Receive Date: 20110708
  Receipt Date: 20110707
  Transmission Date: 20111222
  Serious: Yes (Death)
  Sender: FDA-Public Use
  Company Number: PL-CEPHALON-2009009098

PATIENT
  Sex: Male
  Weight: 60 kg

DRUGS (4)
  1. SEVEDOL [Concomitant]
     Indication: CANCER PAIN
     Route: 048
     Dates: start: 20090710, end: 20090724
  2. VENLAFAXINE HCL [Concomitant]
     Indication: DEPRESSION
     Route: 048
     Dates: start: 20090528, end: 20090727
  3. DURAGESIC-100 [Concomitant]
     Indication: CANCER PAIN
     Dosage: 350 MG/HOUR
     Route: 061
     Dates: start: 20090710, end: 20090724
  4. FENTANYL CITRATE [Suspect]
     Indication: BREAKTHROUGH PAIN
     Route: 002
     Dates: start: 20090625, end: 20090723

REACTIONS (1)
  - PULMONARY HAEMORRHAGE [None]
